FAERS Safety Report 18735934 (Version 3)
Quarter: 2021Q1

REPORT INFORMATION
  Report Type: Report from Study
  Country: US (occurrence: US)
  Receive Date: 20210113
  Receipt Date: 20210216
  Transmission Date: 20210419
  Serious: Yes (Hospitalization, Other)
  Sender: FDA-Public Use
  Company Number: US-GILEAD-2020-0503278

PATIENT
  Age: 45 Year
  Sex: Female

DRUGS (5)
  1. REMODULIN [Suspect]
     Active Substance: TREPROSTINIL
     Indication: PULMONARY ARTERIAL HYPERTENSION
     Dosage: 5 MG/ML
     Route: 058
     Dates: start: 20181002
  2. REMODULIN [Suspect]
     Active Substance: TREPROSTINIL
     Dosage: 37.5 NG
     Route: 058
     Dates: start: 20181031
  3. AMBRISENTAN [Suspect]
     Active Substance: AMBRISENTAN
     Indication: PULMONARY HYPERTENSION
     Dosage: 10 MG, QD
     Route: 065
     Dates: start: 20131025
  4. REMODULIN [Suspect]
     Active Substance: TREPROSTINIL
     Dosage: 34 NG, CYCLICAL
     Route: 065
     Dates: start: 20181009
  5. REMODULIN [Suspect]
     Active Substance: TREPROSTINIL
     Dosage: UNK
     Route: 065
     Dates: start: 20200811

REACTIONS (7)
  - Pulmonary arterial hypertension [Not Recovered/Not Resolved]
  - Diarrhoea [Not Recovered/Not Resolved]
  - Dyspnoea [Not Recovered/Not Resolved]
  - Product dose omission issue [Unknown]
  - Oedema peripheral [Not Recovered/Not Resolved]
  - Swelling [Not Recovered/Not Resolved]
  - Fluid retention [Not Recovered/Not Resolved]

NARRATIVE: CASE EVENT DATE: 202101
